FAERS Safety Report 6982890-1 (Version None)
Quarter: 2010Q3

REPORT INFORMATION
  Report Type: 
  Country: None (occurrence: None)
  Receive Date: 20100914
  Receipt Date: 20100419
  Transmission Date: 20110219
  Serious: No
  Sender: FDA-Public Use
  Company Number: US-PFIZER INC-2010050546

PATIENT
  Sex: Male
  Weight: 75 kg

DRUGS (11)
  1. LYRICA [Suspect]
     Indication: FIBROMYALGIA
     Dosage: 75 MG, 2X/DAY
     Route: 048
     Dates: start: 20100408
  2. LISINOPRIL [Concomitant]
     Dosage: UNK
  3. HYDROCHLOROTHIAZIDE [Concomitant]
     Dosage: UNK
  4. TRAZODONE [Concomitant]
     Dosage: UNK
  5. ACETYLSALICYLIC ACID [Concomitant]
     Dosage: UNK
  6. ADVAIR DISKUS 100/50 [Concomitant]
     Dosage: UNK
  7. ALBUTEROL [Concomitant]
     Dosage: UNK
  8. NEXIUM [Concomitant]
     Dosage: UNK
  9. LIPITOR [Concomitant]
     Dosage: UNK
  10. CELEXA [Concomitant]
     Dosage: UNK
  11. CILOSTAZOL [Concomitant]
     Dosage: UNK

REACTIONS (2)
  - INCREASED APPETITE [None]
  - WEIGHT INCREASED [None]
